FAERS Safety Report 20768380 (Version 3)
Quarter: 2022Q2

REPORT INFORMATION
  Report Type: Spontaneous
  Country: FR (occurrence: FR)
  Receive Date: 20220429
  Receipt Date: 20220509
  Transmission Date: 20220720
  Serious: Yes (Other)
  Sender: FDA-Public Use
  Company Number: FR-AFSSAPS-AVLY20220174

PATIENT
  Age: 21 Year
  Sex: Male

DRUGS (9)
  1. CETIRIZINE [Suspect]
     Active Substance: CETIRIZINE HYDROCHLORIDE
     Indication: Toothache
     Dosage: UNK
     Route: 065
  2. DIAZEPAM [Suspect]
     Active Substance: DIAZEPAM
     Indication: Toxicity to various agents
     Dosage: 30 MILLIGRAM, ONCE A DAY (10 MG, THREE TIMES A DAY)
     Route: 065
  3. DIAZEPAM [Suspect]
     Active Substance: DIAZEPAM
     Dosage: 10 MILLIGRAM, ONCE A DAY
     Route: 065
  4. HYDROXYZINE [Suspect]
     Active Substance: HYDROXYZINE HYDROCHLORIDE
     Indication: Toothache
     Dosage: UNK
     Route: 065
  5. CLONAZEPAM [Suspect]
     Active Substance: CLONAZEPAM
     Indication: Product used for unknown indication
     Dosage: UNK (CONSUMED FOR 4 YEARS, WITHOUT ANY OTHER PRECISION)
     Route: 048
     Dates: start: 2018
  6. LYRICA [Suspect]
     Active Substance: PREGABALIN
     Indication: Toxicity to various agents
     Dosage: 1800 MILLIGRAM, ONCE A DAY (USED FOR 4 YEARS; UP TO UP TO 6 X 300MG/DAY DECLARED)
     Route: 048
     Dates: start: 2018
  7. NORDAZEPAM [Suspect]
     Active Substance: NORDAZEPAM
     Indication: Toothache
     Dosage: UNK
     Route: 065
  8. TEMAZEPAM [Suspect]
     Active Substance: TEMAZEPAM
     Indication: Toothache
     Dosage: UNK
     Route: 065
  9. RIVOTRIL [Suspect]
     Active Substance: CLONAZEPAM
     Indication: Product used for unknown indication
     Dosage: CONSUMED FOR 4 YEARS, WITHOUT ANY OTHER PRECISION
     Route: 048
     Dates: start: 2018

REACTIONS (2)
  - Drug dependence [Recovering/Resolving]
  - Drug abuse [Recovering/Resolving]

NARRATIVE: CASE EVENT DATE: 20180101
